FAERS Safety Report 17533066 (Version 1)
Quarter: 2020Q1

REPORT INFORMATION
  Report Type: Spontaneous
  Country: PK (occurrence: PK)
  Receive Date: 20200312
  Receipt Date: 20200312
  Transmission Date: 20200409
  Serious: Yes (Other)
  Sender: FDA-Public Use
  Company Number: PK-ROCHE-2563122

PATIENT
  Sex: Male

DRUGS (1)
  1. OCREVUS [Suspect]
     Active Substance: OCRELIZUMAB
     Indication: PRIMARY PROGRESSIVE MULTIPLE SCLEROSIS
     Dosage: TWICE 300 MG WITHIN 2 WEEKS
     Route: 042
     Dates: start: 201909

REACTIONS (2)
  - Speech disorder [Unknown]
  - Dyskinesia [Unknown]
